FAERS Safety Report 12531653 (Version 1)
Quarter: 2016Q3

REPORT INFORMATION
  Report Type: Spontaneous
  Country: US (occurrence: US)
  Receive Date: 20160706
  Receipt Date: 20160706
  Transmission Date: 20161109
  Serious: No
  Sender: FDA-Public Use
  Company Number: US-BAUSCH-BL-2015-025876

PATIENT
  Age: 43 Year
  Sex: Female
  Weight: 51.3 kg

DRUGS (4)
  1. TYLENOL [Concomitant]
     Active Substance: ACETAMINOPHEN
     Indication: PRODUCT USED FOR UNKNOWN INDICATION
  2. LISINOPRIL. [Concomitant]
     Active Substance: LISINOPRIL
     Indication: PRODUCT USED FOR UNKNOWN INDICATION
  3. OFLOXACIN OPHTHALMIC [Suspect]
     Active Substance: OFLOXACIN
     Indication: CONJUNCTIVAL OEDEMA
     Route: 047
     Dates: start: 20151025, end: 20151025
  4. OFLOXACIN OPHTHALMIC [Suspect]
     Active Substance: OFLOXACIN
     Indication: HYPERSENSITIVITY
     Route: 047
     Dates: start: 20151024, end: 20151024

REACTIONS (5)
  - Condition aggravated [Recovering/Resolving]
  - Vision blurred [Not Recovered/Not Resolved]
  - Eye swelling [Recovering/Resolving]
  - Blister [Recovering/Resolving]
  - Ocular hyperaemia [Recovering/Resolving]

NARRATIVE: CASE EVENT DATE: 201510
